FAERS Safety Report 8910651 (Version 1)
Quarter: 2012Q4

REPORT INFORMATION
  Report Type: Spontaneous
  Country: SG (occurrence: None)
  Receive Date: 20121108
  Receipt Date: 20121108
  Transmission Date: 20130627
  Serious: Yes (Other)
  Sender: FDA-Public Use
  Company Number: B0842337A

PATIENT
  Age: 49 Year
  Sex: Female

DRUGS (3)
  1. ACYCLOVIR [Suspect]
     Indication: HERPES SIMPLEX
     Route: 048
  2. ADRENALINE [Concomitant]
  3. ESOMEPRAZOLE [Concomitant]

REACTIONS (5)
  - Toxicity to various agents [None]
  - Dysarthria [None]
  - Nervous system disorder [None]
  - Balance disorder [None]
  - Coordination abnormal [None]
